FAERS Safety Report 5148010-3 (Version None)
Quarter: 2006Q4

REPORT INFORMATION
  Report Type: 
  Country: None (occurrence: None)
  Receive Date: 20061110
  Receipt Date: 20061101
  Transmission Date: 20070319
  Serious: Yes (Other)
  Sender: FDA-Public Use
  Company Number: CA-GLAXOSMITHKLINE-A0626085A

PATIENT
  Age: 59 Year
  Sex: Male
  Weight: 95 kg

DRUGS (5)
  1. AVANDIA [Suspect]
     Indication: DIABETES MELLITUS
     Dosage: 4MG PER DAY
     Route: 048
     Dates: start: 20040701, end: 20060918
  2. ASPIRIN [Concomitant]
     Dosage: 81MG PER DAY
     Route: 048
  3. MONOPRIL [Concomitant]
     Dosage: 20MG PER DAY
     Route: 048
  4. HYDROCHLOROTHIAZIDE [Concomitant]
     Dosage: 12.5MG PER DAY
     Route: 048
  5. DISULFIRAM [Concomitant]
     Dosage: 100MG PER DAY
     Route: 048

REACTIONS (1)
  - THROMBOCYTOPENIA [None]
